FAERS Safety Report 8442036-X (Version None)
Quarter: 2012Q2

REPORT INFORMATION
  Report Type: 
  Country: None (occurrence: None)
  Receive Date: 20120615
  Receipt Date: 20120606
  Transmission Date: 20120825
  Serious: Yes (Hospitalization)
  Sender: FDA-Public Use
  Company Number: US-BAYER-2012-024451

PATIENT
  Age: 18 Year
  Sex: Female
  Weight: 52.154 kg

DRUGS (2)
  1. DEPO-MEDROL [Concomitant]
     Dosage: 80 MG, UNK
  2. YAZ [Suspect]
     Indication: OVARIAN CYST
     Dosage: UNK
     Dates: start: 20091201, end: 20100501

REACTIONS (6)
  - GENERAL PHYSICAL HEALTH DETERIORATION [None]
  - PULMONARY EMBOLISM [None]
  - PAIN [None]
  - DYSPNOEA [None]
  - ANXIETY [None]
  - EMOTIONAL DISTRESS [None]
